FAERS Safety Report 5680189-7 (Version None)
Quarter: 2008Q1

REPORT INFORMATION
  Report Type: 
  Country: None (occurrence: None)
  Receive Date: 20080326
  Receipt Date: 20080325
  Transmission Date: 20080703
  Serious: Yes (Other)
  Sender: FDA-Public Use
  Company Number: GB-BRISTOL-MYERS SQUIBB COMPANY-14125264

PATIENT
  Age: 52 Year
  Sex: Female

DRUGS (6)
  1. ETOPOSIDE [Suspect]
     Indication: ACUTE MYELOID LEUKAEMIA
     Dosage: DAYS 1-5.
  2. AMSACRINE [Suspect]
     Indication: ACUTE MYELOID LEUKAEMIA
  3. CYTARABINE [Suspect]
     Indication: ACUTE MYELOID LEUKAEMIA
     Dosage: DAYS 1-3.
  4. FLUDARABINE [Suspect]
     Indication: ACUTE MYELOID LEUKAEMIA
  5. NEUPOGEN [Suspect]
     Indication: ACUTE MYELOID LEUKAEMIA
  6. MITOXANTRONE [Suspect]
     Indication: ACUTE MYELOID LEUKAEMIA
     Dosage: DAYS 1-5

REACTIONS (3)
  - NEUTROPENIA [None]
  - SINUSITIS FUNGAL [None]
  - VITH NERVE PARALYSIS [None]
